FAERS Safety Report 4564401-3 (Version None)
Quarter: 2005Q1

REPORT INFORMATION
  Report Type: 
  Country: None (occurrence: None)
  Receive Date: 20050126
  Receipt Date: 20050119
  Transmission Date: 20050727
  Serious: Yes (Hospitalization)
  Sender: FDA-Public Use
  Company Number: 2005SE00317

PATIENT
  Age: 67 Year
  Sex: Male

DRUGS (4)
  1. BLOPRESS [Suspect]
     Indication: HYPERTENSION
     Dosage: 8 MG QD PO
     Route: 048
     Dates: start: 20010301, end: 20050112
  2. SELBEX [Suspect]
  3. LAC B [Concomitant]
  4. MULTIVITAMIN [Concomitant]

REACTIONS (5)
  - CHOLESTASIS [None]
  - COLITIS [None]
  - HEPATITIS ACUTE [None]
  - HEPATITIS VIRAL [None]
  - SUBILEUS [None]
